FAERS Safety Report 8284550-6 (Version None)
Quarter: 2012Q2

REPORT INFORMATION
  Report Type: 
  Country: None (occurrence: None)
  Receive Date: 20120413
  Receipt Date: 20111222
  Transmission Date: 20120825
  Serious: No
  Sender: FDA-Public Use
  Company Number: US-ASTRAZENECA-2010SE36275

PATIENT
  Age: 44 Year
  Sex: Female

DRUGS (3)
  1. PRILOSEC [Suspect]
     Route: 048
  2. REGLAN [Concomitant]
  3. NEXIUM [Suspect]
     Route: 048

REACTIONS (5)
  - DRUG DOSE OMISSION [None]
  - CHOKING SENSATION [None]
  - DRUG INEFFECTIVE [None]
  - MALAISE [None]
  - ABDOMINAL PAIN UPPER [None]
